FAERS Safety Report 8820892 (Version 1)
Quarter: 2012Q4

REPORT INFORMATION
  Report Type: 
  Country: CN (occurrence: CN)
  Receive Date: 20121002
  Receipt Date: 20121002
  Transmission Date: 20130627
  Serious: Yes (Other)
  Sender: FDA-Public Use
  Company Number: CN-PFIZER INC-2012239383

PATIENT
  Age: 14 Year
  Sex: Female

DRUGS (1)
  1. ZITHROMAX [Suspect]
     Indication: PSEUDOMONAS INFECTION
     Dosage: 250 mg, alternate day
     Route: 048

REACTIONS (1)
  - Gastrointestinal haemorrhage [Unknown]
